FAERS Safety Report 6863927-7 (Version None)
Quarter: 2010Q3

REPORT INFORMATION
  Report Type: 
  Country: None (occurrence: None)
  Receive Date: 20100720
  Receipt Date: 20100707
  Transmission Date: 20110219
  Serious: Yes (Hospitalization)
  Sender: FDA-Public Use
  Company Number: 7010342

PATIENT
  Age: 42 Year
  Sex: Female
  Weight: 66 kg

DRUGS (8)
  1. REBIF [Suspect]
     Indication: MULTIPLE SCLEROSIS
     Dosage: 44 MCG, 3 IN 1 WK, SUBCUTANEOUS
     Route: 058
     Dates: start: 20060707
  2. LOVASTATIN [Concomitant]
  3. METOPROLOL SUCCINATE [Concomitant]
  4. LEVOTHYROXINE SODIUM [Concomitant]
  5. PLAVIX [Concomitant]
  6. PEPCID [Concomitant]
  7. ASPIRIN [Concomitant]
  8. XANAX [Concomitant]

REACTIONS (3)
  - BLOOD PRESSURE FLUCTUATION [None]
  - CORONARY ARTERY OCCLUSION [None]
  - HYPOAESTHESIA [None]
